FAERS Safety Report 14763055 (Version 1)
Quarter: 2018Q2

REPORT INFORMATION
  Report Type: Spontaneous
  Country: US (occurrence: US)
  Receive Date: 20180416
  Receipt Date: 20180416
  Transmission Date: 20180711
  Serious: No
  Sender: FDA-Public Use
  Company Number: US-BAYER-2018-066517

PATIENT
  Age: 72 Year
  Sex: Female
  Weight: 55.96 kg

DRUGS (2)
  1. ALEVE [Suspect]
     Active Substance: NAPROXEN SODIUM
     Indication: INFLAMMATION
     Dosage: 2 DF, BID
     Route: 048
     Dates: start: 20180403
  2. TIMOLOL. [Concomitant]
     Active Substance: TIMOLOL

REACTIONS (4)
  - Circumstance or information capable of leading to medication error [Unknown]
  - Incorrect dose administered [None]
  - Drug prescribing error [Unknown]
  - Product use in unapproved indication [Unknown]
